FAERS Safety Report 8091828-8 (Version None)
Quarter: 2012Q1

REPORT INFORMATION
  Report Type: 
  Country: None (occurrence: None)
  Receive Date: 20120129
  Receipt Date: 20111115
  Transmission Date: 20120608
  Serious: No
  Sender: FDA-Public Use
  Company Number: US-ABBOTT-11P-163-0874222-00

PATIENT
  Sex: Male
  Weight: 158.9 kg

DRUGS (16)
  1. ZOLOFT [Concomitant]
     Indication: DEPRESSION
  2. HYDROCHLOROTHIAZIDE [Concomitant]
     Indication: HYPERTENSION
  3. VITAMIN D [Concomitant]
     Indication: VITAMIN D DECREASED
  4. XANAX [Concomitant]
     Indication: INSOMNIA
  5. METFORMIN HCL [Concomitant]
     Indication: DIABETES MELLITUS
  6. HYDROCODONE BITARTRATE [Concomitant]
     Indication: PAIN
  7. FISH OIL [Concomitant]
     Indication: CARDIAC DISORDER
  8. LOTREL [Concomitant]
     Indication: HYPERTENSION
  9. FLOMAX [Concomitant]
     Indication: PROSTATOMEGALY
  10. NEXIUM [Concomitant]
     Indication: GASTROOESOPHAGEAL REFLUX DISEASE
  11. CARBIDOPA [Concomitant]
     Indication: PARKINSON'S DISEASE
  12. WELLBUTRIN [Concomitant]
     Indication: DEPRESSION
  13. ATENOLOL [Concomitant]
     Indication: HYPERTENSION
  14. HUMIRA [Suspect]
     Indication: PSORIATIC ARTHROPATHY
     Dates: start: 20110901
  15. GLUCOPHAGE [Concomitant]
     Indication: DIABETES MELLITUS
  16. ASPIRIN [Concomitant]
     Indication: CARDIAC DISORDER

REACTIONS (1)
  - ARTHRALGIA [None]
